FAERS Safety Report 24271044 (Version 1)
Quarter: 2024Q3

REPORT INFORMATION
  Report Type: Spontaneous
  Country: GB (occurrence: GB)
  Receive Date: 20240831
  Receipt Date: 20240831
  Transmission Date: 20241017
  Serious: Yes (Other)
  Sender: ROCHE
  Company Number: None

PATIENT
  Age: 70 Year
  Sex: Male

DRUGS (1)
  1. BEVACIZUMAB [Suspect]
     Active Substance: BEVACIZUMAB
     Indication: Colon cancer
     Dosage: 450MG - IV INFUSION
     Route: 042

REACTIONS (3)
  - Constipation [Unknown]
  - Fatigue [Unknown]
  - Cataract [Unknown]

NARRATIVE: CASE EVENT DATE: 20240827
